FAERS Safety Report 4754505-4 (Version None)
Quarter: 2005Q3

REPORT INFORMATION
  Report Type: 
  Country: None (occurrence: None)
  Receive Date: 20050825
  Receipt Date: 20050825
  Transmission Date: 20060218
  Serious: Yes (Life-Threatening, Hospitalization)
  Sender: FDA-Public Use
  Company Number: None

PATIENT
  Age: 65 Year
  Sex: Male
  Weight: 119.296 kg

DRUGS (2)
  1. ARIPIPRAZOLE 5MG [Suspect]
     Indication: PARKINSONISM
     Dosage: 5MG  QAM   PO
     Route: 048
     Dates: start: 20050820, end: 20050822
  2. ARIPIPRAZOLE 5MG [Suspect]
     Indication: SCHIZOAFFECTIVE DISORDER
     Dosage: 5MG  QAM   PO
     Route: 048
     Dates: start: 20050820, end: 20050822

REACTIONS (1)
  - NEUROLEPTIC MALIGNANT SYNDROME [None]
